FAERS Safety Report 25062403 (Version 2)
Quarter: 2025Q1

REPORT INFORMATION
  Report Type: Report from Study
  Country: RU (occurrence: RU)
  Receive Date: 20250311
  Receipt Date: 20250327
  Transmission Date: 20250409
  Serious: Yes (Other)
  Sender: BRAINTREE
  Company Number: RU-BRAINTREE LABORATORIES, INC.-2025BTE00117

PATIENT
  Age: 71 Year
  Sex: Male

DRUGS (1)
  1. MAGNESIUM SULFATE\POTASSIUM SULFATE\SODIUM SULFATE [Suspect]
     Active Substance: MAGNESIUM SULFATE\POTASSIUM SULFATE\SODIUM SULFATE
     Indication: Product used for unknown indication
     Route: 065
     Dates: start: 20250223, end: 20250224

REACTIONS (2)
  - Haematemesis [Unknown]
  - Nausea [Unknown]

NARRATIVE: CASE EVENT DATE: 20250224
